FAERS Safety Report 11065766 (Version 2)
Quarter: 2015Q2

REPORT INFORMATION
  Report Type: Spontaneous
  Country: US (occurrence: None)
  Receive Date: 20150423
  Receipt Date: 20150601
  Transmission Date: 20150821
  Serious: Yes (Death)
  Sender: FDA-Public Use
  Company Number: 2015TASUS000751

PATIENT
  Age: 87 Year
  Sex: Male

DRUGS (13)
  1. ESCITALOPRAM OXALATE. [Concomitant]
     Active Substance: ESCITALOPRAM OXALATE
  2. POTASSIUM CHLORIDE. [Concomitant]
     Active Substance: POTASSIUM CHLORIDE
  3. FUROSEMIDE. [Concomitant]
     Active Substance: FUROSEMIDE
  4. MILK OF MAGNESIA [Concomitant]
     Active Substance: MAGNESIUM HYDROXIDE
  5. MYLANTA (CALCIUM CARBONATE) [Concomitant]
  6. FINASTERIDE. [Concomitant]
     Active Substance: FINASTERIDE
  7. HETLIOZ [Suspect]
     Active Substance: TASIMELTEON
     Indication: CIRCADIAN RHYTHM SLEEP DISORDER
     Route: 048
     Dates: start: 20141024, end: 201503
  8. SODIUM CHLORIDE. [Concomitant]
     Active Substance: SODIUM CHLORIDE
  9. PSYLLIUM [Concomitant]
     Active Substance: PLANTAGO SEED
  10. GUAIFENESIN. [Concomitant]
     Active Substance: GUAIFENESIN
  11. DULCOLAX (BISACODYL) [Concomitant]
     Active Substance: BISACODYL
  12. SILTUSSIN (AMMONIUM CHLORIDE, GUAIFENESIN, MENTHOL) [Concomitant]
  13. LORATADINE. [Concomitant]
     Active Substance: LORATADINE

REACTIONS (3)
  - Death [None]
  - Acute myocardial infarction [None]
  - Pneumonia [None]
